FAERS Safety Report 16297459 (Version 3)
Quarter: 2019Q3

REPORT INFORMATION
  Report Type: Spontaneous
  Country: FR (occurrence: FR)
  Receive Date: 20190510
  Receipt Date: 20190719
  Transmission Date: 20191004
  Serious: Yes (Hospitalization, Other)
  Sender: FDA-Public Use
  Company Number: FR-AUROBINDO-AUR-APL-2019-024744

PATIENT

DRUGS (4)
  1. ZOPHREN [Suspect]
     Active Substance: ONDANSETRON
     Indication: NAUSEA
     Dosage: 24 MILLIGRAM, ONCE A DAY
     Route: 042
     Dates: start: 20190405, end: 20190409
  2. OXALIPLATIN. [Suspect]
     Active Substance: OXALIPLATIN
     Indication: ADENOCARCINOMA PANCREAS
     Dosage: 145 MG SELON LE CYCLE
     Route: 041
     Dates: start: 20190405, end: 20190405
  3. IRINOTECAN [Suspect]
     Active Substance: IRINOTECAN
     Indication: ADENOCARCINOMA PANCREAS
     Dosage: 260 MG SELON LE CYCLE
     Route: 041
     Dates: start: 20190405, end: 20190405
  4. FLUOROURACIL. [Suspect]
     Active Substance: FLUOROURACIL
     Indication: ADENOCARCINOMA PANCREAS
     Dosage: 8300 MILLIGRAM SELON LE CYCLE
     Route: 041
     Dates: start: 20190405, end: 20190407

REACTIONS (7)
  - Decreased eye contact [Recovering/Resolving]
  - Dyskinesia [Recovering/Resolving]
  - Product prescribing error [Recovered/Resolved]
  - Petit mal epilepsy [Recovering/Resolving]
  - Musculoskeletal stiffness [Recovering/Resolving]
  - Leukoencephalopathy [Recovering/Resolving]
  - Aphasia [Recovering/Resolving]

NARRATIVE: CASE EVENT DATE: 20190405
